FAERS Safety Report 7852664-8 (Version None)
Quarter: 2011Q4

REPORT INFORMATION
  Report Type: 
  Country: None (occurrence: None)
  Receive Date: 20111026
  Receipt Date: 20111024
  Transmission Date: 20120403
  Serious: Yes (Other)
  Sender: FDA-Public Use
  Company Number: DE-GLAXOSMITHKLINE-D0073124A

PATIENT
  Age: 70 Year
  Sex: Male

DRUGS (1)
  1. HYCAMTIN [Suspect]
     Indication: BRONCHIAL CARCINOMA
     Route: 065

REACTIONS (2)
  - BLOOD BILIRUBIN INCREASED [None]
  - CHOLESTASIS [None]
